FAERS Safety Report 17073896 (Version 2)
Quarter: 2020Q1

REPORT INFORMATION
  Report Type: Spontaneous
  Country: US (occurrence: US)
  Receive Date: 20191126
  Receipt Date: 20200327
  Transmission Date: 20200409
  Serious: Yes (Other)
  Sender: FDA-Public Use
  Company Number: US-ASTRAZENECA-2019SF66698

PATIENT
  Age: 58 Year
  Sex: Female
  Weight: 61.2 kg

DRUGS (46)
  1. PRILOSEC [Suspect]
     Active Substance: OMEPRAZOLE MAGNESIUM
     Indication: GASTROOESOPHAGEAL REFLUX DISEASE
     Route: 048
     Dates: start: 200701
  2. PRILOSEC [Suspect]
     Active Substance: OMEPRAZOLE MAGNESIUM
     Indication: GASTROOESOPHAGEAL REFLUX DISEASE
     Route: 048
     Dates: start: 200902, end: 200904
  3. PREVACID [Suspect]
     Active Substance: LANSOPRAZOLE
     Indication: GASTROOESOPHAGEAL REFLUX DISEASE
     Route: 065
     Dates: start: 200701
  4. CYCLOBENZAPRINE. [Concomitant]
     Active Substance: CYCLOBENZAPRINE
     Indication: MUSCLE RELAXANT THERAPY
     Dates: start: 2006, end: 2018
  5. DOXYCYCLINE. [Concomitant]
     Active Substance: DOXYCYCLINE
  6. NIASPAN [Concomitant]
     Active Substance: NIACIN
  7. TIMOLOL MALEATE. [Concomitant]
     Active Substance: TIMOLOL MALEATE
  8. CIPROFLOXACIN. [Concomitant]
     Active Substance: CIPROFLOXACIN
  9. CYCLOBENZAPRINE. [Concomitant]
     Active Substance: CYCLOBENZAPRINE
  10. PREVACID [Suspect]
     Active Substance: LANSOPRAZOLE
     Indication: GASTROOESOPHAGEAL REFLUX DISEASE
     Dosage: GENERIC
     Route: 065
     Dates: start: 201112, end: 201212
  11. QUIXIN [Concomitant]
     Active Substance: LEVOFLOXACIN
  12. FOSAMAX [Concomitant]
     Active Substance: ALENDRONATE SODIUM
  13. CLEMASTINE [Concomitant]
     Active Substance: CLEMASTINE
  14. ERYTHROMYCIN. [Concomitant]
     Active Substance: ERYTHROMYCIN
  15. AMITIZA [Concomitant]
     Active Substance: LUBIPROSTONE
  16. PRILOSEC [Suspect]
     Active Substance: OMEPRAZOLE MAGNESIUM
     Indication: GASTROOESOPHAGEAL REFLUX DISEASE
     Route: 048
     Dates: start: 20060327
  17. LORATADINE. [Concomitant]
     Active Substance: LORATADINE
     Indication: MULTIPLE ALLERGIES
     Dates: start: 2012, end: 2020
  18. BONIVA [Concomitant]
     Active Substance: IBANDRONATE SODIUM
  19. ALENDRONATE [Concomitant]
     Active Substance: ALENDRONATE SODIUM
  20. PANTOPRAZOLE [Suspect]
     Active Substance: PANTOPRAZOLE
     Indication: GASTROOESOPHAGEAL REFLUX DISEASE
     Route: 065
     Dates: start: 201603, end: 201604
  21. XALATAN [Concomitant]
     Active Substance: LATANOPROST
  22. ALPHAGAN P [Concomitant]
     Active Substance: BRIMONIDINE TARTRATE
  23. MUPIROCIN. [Concomitant]
     Active Substance: MUPIROCIN
  24. NITROFURANTOIN. [Concomitant]
     Active Substance: NITROFURANTOIN
  25. HYDROCODONE [Concomitant]
     Active Substance: HYDROCODONE
  26. FLUCONAZOLE. [Concomitant]
     Active Substance: FLUCONAZOLE
  27. PREVACID [Suspect]
     Active Substance: LANSOPRAZOLE
     Indication: GASTROOESOPHAGEAL REFLUX DISEASE
     Route: 065
     Dates: start: 200902, end: 200904
  28. TYLENOL [Concomitant]
     Active Substance: ACETAMINOPHEN
     Indication: PAIN
     Dates: start: 2018, end: 2018
  29. KLOR-CON [Concomitant]
     Active Substance: POTASSIUM CHLORIDE
  30. ACETAMINOPHEN-COD [Concomitant]
     Active Substance: ACETAMINOPHEN\CODEINE PHOSPHATE
  31. NYSTATIN-TRIAMCINOLONE [Concomitant]
  32. TERCONAZOLE. [Concomitant]
     Active Substance: TERCONAZOLE
  33. PRILOSEC [Suspect]
     Active Substance: OMEPRAZOLE MAGNESIUM
     Indication: GASTROOESOPHAGEAL REFLUX DISEASE
     Dosage: GENERIC
     Route: 065
     Dates: start: 200709, end: 200905
  34. ESOMEPRAZOLE. [Suspect]
     Active Substance: ESOMEPRAZOLE MAGNESIUM
     Indication: GASTROOESOPHAGEAL REFLUX DISEASE
     Route: 065
     Dates: start: 201603, end: 201609
  35. PROMETHAZONE [Concomitant]
     Indication: ANTIALLERGIC THERAPY
     Dates: start: 2008, end: 2018
  36. VIGAMOX [Concomitant]
     Active Substance: MOXIFLOXACIN HYDROCHLORIDE
  37. FLUOROMETHOLONE. [Concomitant]
     Active Substance: FLUOROMETHOLONE
  38. FLUCONAZOLE. [Concomitant]
     Active Substance: FLUCONAZOLE
  39. RANITIDINE. [Concomitant]
     Active Substance: RANITIDINE
  40. VOLTAREN [Concomitant]
     Active Substance: DICLOFENAC SODIUM
  41. TRAVATAN [Concomitant]
     Active Substance: TRAVOPROST
  42. POLYETHYLENE GLYCOL [Concomitant]
     Active Substance: POLYETHYLENE GLYCOLS
  43. FLUTICASONE. [Concomitant]
     Active Substance: FLUTICASONE
     Indication: ASTHMA
     Dates: start: 2018, end: 2019
  44. POTASSIUM [Concomitant]
     Active Substance: POTASSIUM
     Indication: SUPPLEMENTATION THERAPY
     Dates: start: 2010, end: 2019
  45. DETROL [Concomitant]
     Active Substance: TOLTERODINE TARTRATE
  46. CLOBETASOL [Concomitant]
     Active Substance: CLOBETASOL

REACTIONS (1)
  - Chronic kidney disease [Not Recovered/Not Resolved]

NARRATIVE: CASE EVENT DATE: 2015
